FAERS Safety Report 10899359 (Version 2)
Quarter: 2015Q2

REPORT INFORMATION
  Report Type: Report from Study
  Country: BE (occurrence: BE)
  Receive Date: 20150309
  Receipt Date: 20150409
  Transmission Date: 20150821
  Serious: Yes (Hospitalization)
  Sender: FDA-Public Use
  Company Number: BE-ABBVIE-14P-013-1324463-00

PATIENT
  Sex: Male

DRUGS (7)
  1. DUODOPA [Suspect]
     Active Substance: CARBIDOPA\LEVODOPA
     Indication: PARKINSON^S DISEASE
     Dosage: AM 7ML, CONT DOSE 4ML/H DURING 16 H, ED 1.5ML
     Route: 050
     Dates: start: 20120109, end: 20120112
  2. LEPONEX [Concomitant]
     Active Substance: CLOZAPINE
     Indication: PRODUCT USED FOR UNKNOWN INDICATION
     Dosage: AT 8AM
  3. SERLAIN [Concomitant]
     Active Substance: SERTRALINE HYDROCHLORIDE
     Indication: PRODUCT USED FOR UNKNOWN INDICATION
     Dosage: AT 8AM
  4. DUODOPA [Suspect]
     Active Substance: CARBIDOPA\LEVODOPA
     Dosage: AM 8ML, CONT DOSE 3.6ML/H DURING 16H, ED 1.5ML
     Route: 050
     Dates: start: 20130927
  5. REMERGON [Concomitant]
     Active Substance: MIRTAZAPINE
     Indication: PRODUCT USED FOR UNKNOWN INDICATION
     Dosage: AT 8PM
  6. NUTROF OMEGA [Concomitant]
     Indication: PRODUCT USED FOR UNKNOWN INDICATION
  7. DUODOPA [Suspect]
     Active Substance: CARBIDOPA\LEVODOPA
     Dosage: DOSAGE CONTINUOUSLY MONITORED AND ADJUSTED
     Route: 050
     Dates: start: 20120112, end: 20130927

REACTIONS (6)
  - Mobility decreased [Unknown]
  - Pain [Recovered/Resolved with Sequelae]
  - Confusional state [Not Recovered/Not Resolved]
  - Spinal fracture [Not Recovered/Not Resolved]
  - Parkinsonism [Unknown]
  - Fall [Recovered/Resolved]
